FAERS Safety Report 19855093 (Version 1)
Quarter: 2021Q3

REPORT INFORMATION
  Report Type: Spontaneous
  Country: US (occurrence: US)
  Receive Date: 20210918
  Receipt Date: 20210918
  Transmission Date: 20211014
  Serious: Yes (Other)
  Sender: FDA-Public Use
  Company Number: None

PATIENT
  Age: 51 Year
  Sex: Female
  Weight: 76.7 kg

DRUGS (16)
  1. MAGNESIUM OXIDE. [Concomitant]
     Active Substance: MAGNESIUM OXIDE
  2. DOXORUBICIN LIPOSOME [Suspect]
     Active Substance: DOXORUBICIN
     Indication: OVARIAN CANCER
     Dosage: ?          OTHER FREQUENCY:ONCE;?
     Route: 042
  3. VITAMIN D3 [Concomitant]
     Active Substance: CHOLECALCIFEROL
  4. GINGER ROOT [Concomitant]
     Active Substance: GINGER
  5. HYDROMORPHONE [Concomitant]
     Active Substance: HYDROMORPHONE
  6. SENNA [Concomitant]
     Active Substance: SENNA LEAF\SENNOSIDES\SENNOSIDES A AND B
  7. DOCUSATE [Concomitant]
     Active Substance: DOCUSATE
  8. EMLA TOPICAL [Concomitant]
  9. BEVACIZUMAB?AWWB [Concomitant]
     Active Substance: BEVACIZUMAB-AWWB
  10. VITAMIN B12 [Concomitant]
     Active Substance: CYANOCOBALAMIN
  11. DIPHENHYDRAMINE. [Concomitant]
     Active Substance: DIPHENHYDRAMINE
  12. LEVOTHYROXINE. [Concomitant]
     Active Substance: LEVOTHYROXINE
  13. ACETAMINOPHEN. [Concomitant]
     Active Substance: ACETAMINOPHEN
  14. DOXORUBICIN LIPOSOME [Suspect]
     Active Substance: DOXORUBICIN
     Indication: OVARIAN CANCER
     Dosage: ?          OTHER FREQUENCY:ONCE;?
     Route: 042
  15. IBUPROFEN. [Concomitant]
     Active Substance: IBUPROFEN
  16. PAROXETINE. [Concomitant]
     Active Substance: PAROXETINE

REACTIONS (5)
  - Chest discomfort [None]
  - Rash [None]
  - Dizziness [None]
  - Flushing [None]
  - Infusion related reaction [None]
